FAERS Safety Report 15142875 (Version 1)
Quarter: 2018Q3

REPORT INFORMATION
  Report Type: Spontaneous
  Country: US (occurrence: US)
  Receive Date: 20180713
  Receipt Date: 20180713
  Transmission Date: 20181010
  Serious: Yes (Other)
  Sender: FDA-Public Use
  Company Number: US-ASTELLAS-2018US005489

PATIENT
  Age: 71 Year
  Sex: Female

DRUGS (7)
  1. MYRBETRIQ [Suspect]
     Active Substance: MIRABEGRON
     Indication: STRESS URINARY INCONTINENCE
  2. GELNIQUE [Concomitant]
     Active Substance: OXYBUTYNIN
     Indication: INCONTINENCE
  3. MYRBETRIQ [Suspect]
     Active Substance: MIRABEGRON
     Indication: INSOMNIA
  4. GELNIQUE [Concomitant]
     Active Substance: OXYBUTYNIN
     Indication: HYPERTONIC BLADDER
     Dosage: UNK UNK, UNKNOWN FREQ.
     Route: 065
  5. MYRBETRIQ [Suspect]
     Active Substance: MIRABEGRON
     Indication: HYPERTONIC BLADDER
     Route: 065
     Dates: start: 20180124, end: 20180125
  6. GELNIQUE [Concomitant]
     Active Substance: OXYBUTYNIN
     Indication: POLLAKIURIA
  7. MYRBETRIQ [Suspect]
     Active Substance: MIRABEGRON
     Indication: POLLAKIURIA

REACTIONS (3)
  - Headache [Recovered/Resolved]
  - Blood pressure increased [Recovered/Resolved]
  - Bladder discomfort [Recovered/Resolved]

NARRATIVE: CASE EVENT DATE: 20180124
